FAERS Safety Report 5232762-8 (Version None)
Quarter: 2007Q1

REPORT INFORMATION
  Report Type: 
  Country: None (occurrence: None)
  Receive Date: 20070206
  Receipt Date: 20070206
  Transmission Date: 20070707
  Serious: Yes (Hospitalization)
  Sender: FDA-Public Use
  Company Number: None

PATIENT
  Age: 76 Year
  Sex: Male
  Weight: 92.9874 kg

DRUGS (1)
  1. HEPARIN [Suspect]
     Indication: ACUTE CORONARY SYNDROME
     Dosage: TITRATE   IV
     Route: 042
     Dates: start: 20070124, end: 20070125

REACTIONS (1)
  - HEPARIN-INDUCED THROMBOCYTOPENIA [None]
